FAERS Safety Report 24716678 (Version 1)
Quarter: 2024Q4

REPORT INFORMATION
  Report Type: Spontaneous
  Country: US (occurrence: None)
  Receive Date: 20241209
  Receipt Date: 20241209
  Transmission Date: 20250115
  Serious: No
  Sender: Public
  Company Number: None

PATIENT
  Age: 79 Year
  Sex: Female

DRUGS (1)
  1. SKYRIZI [Suspect]
     Active Substance: RISANKIZUMAB-RZAA
     Indication: Crohn^s disease
     Dosage: OTHER QUANTITY : 360MG/2.4M;?OTHER FREQUENCY : EVERY 8 WEEKS;?
     Route: 058
     Dates: start: 202212

REACTIONS (3)
  - Device use error [None]
  - Device breakage [None]
  - Product administration error [None]

NARRATIVE: CASE EVENT DATE: 20241127
